FAERS Safety Report 6553288-5 (Version None)
Quarter: 2010Q1

REPORT INFORMATION
  Report Type: 
  Country: None (occurrence: None)
  Receive Date: 20100127
  Receipt Date: 20090601
  Transmission Date: 20100710
  Serious: No
  Sender: FDA-Public Use
  Company Number: A0787736A

PATIENT
  Sex: Female

DRUGS (8)
  1. IMITREX [Suspect]
     Indication: TIC
     Dosage: 6MG TEN TIMES PER DAY
     Route: 058
  2. VERAPAMIL [Concomitant]
  3. DEPAKOTE [Concomitant]
  4. LYRICA [Concomitant]
  5. OXYCONTIN [Concomitant]
  6. VICODIN [Concomitant]
  7. MORPHINE SULFATE [Concomitant]
  8. DILAUDID [Concomitant]

REACTIONS (1)
  - OVERDOSE [None]
